FAERS Safety Report 13187834 (Version 1)
Quarter: 2017Q1

REPORT INFORMATION
  Report Type: Spontaneous
  Country: US (occurrence: US)
  Receive Date: 20170206
  Receipt Date: 20170206
  Transmission Date: 20170428
  Serious: No
  Sender: FDA-Public Use
  Company Number: PHEH2017US003616

PATIENT
  Age: 40 Year
  Sex: Female

DRUGS (2)
  1. PROMACTA [Suspect]
     Active Substance: ELTROMBOPAG OLAMINE
     Indication: THROMBOCYTOPENIA
     Dosage: 12.5 MG, M,W,F (MONDAY , WEDNESDAY AND FRIDAY)
     Route: 048
     Dates: start: 20170104
  2. PROMACTA [Suspect]
     Active Substance: ELTROMBOPAG OLAMINE
     Dosage: 25 MG, (TUESDAY AND THURSDAY)
     Route: 048
     Dates: start: 20170104

REACTIONS (1)
  - Headache [Unknown]
